FAERS Safety Report 12935107 (Version 3)
Quarter: 2017Q3

REPORT INFORMATION
  Report Type: Report from Study
  Country: FR (occurrence: FR)
  Receive Date: 20161113
  Receipt Date: 20170815
  Transmission Date: 20171127
  Serious: Yes (Death, Hospitalization)
  Sender: FDA-Public Use
  Company Number: FR-ROCHE-1853348

PATIENT
  Age: 54 Year
  Sex: Male
  Weight: 110 kg

DRUGS (9)
  1. 5-FU [Suspect]
     Active Substance: FLUOROURACIL
     Indication: COLORECTAL CANCER METASTATIC
     Route: 040
     Dates: start: 20160821, end: 20160823
  2. 5-FU [Suspect]
     Active Substance: FLUOROURACIL
     Route: 041
     Dates: start: 20160821, end: 20160823
  3. OXALIPLATIN HOSPIRA [Suspect]
     Active Substance: OXALIPLATIN
     Indication: COLORECTAL CANCER METASTATIC
     Dosage: 210 MG
     Route: 041
     Dates: start: 20160821, end: 20160821
  4. LASILIX [Concomitant]
     Active Substance: FUROSEMIDE
     Route: 048
  5. IRINOTECAN HOSPIRA [Suspect]
     Active Substance: IRINOTECAN
     Indication: COLORECTAL CANCER METASTATIC
     Dosage: 375.5 MG
     Route: 041
     Dates: start: 20160821, end: 20160821
  6. DIFFU K [Concomitant]
     Active Substance: POTASSIUM CHLORIDE
  7. PRIMPERAN [Concomitant]
     Active Substance: METOCLOPRAMIDE HYDROCHLORIDE
  8. BEVACIZUMAB. [Suspect]
     Active Substance: BEVACIZUMAB
     Indication: COLORECTAL CANCER METASTATIC
     Dosage: 620 MG
     Route: 041
     Dates: start: 20160821, end: 20160821
  9. COVERAM [Concomitant]
     Active Substance: AMLODIPINE\PERINDOPRIL
     Dosage: 10 MG OR 5 MG
     Route: 048

REACTIONS (3)
  - Peritonitis [Fatal]
  - Septic shock [Fatal]
  - Large intestine perforation [Fatal]

NARRATIVE: CASE EVENT DATE: 20160908
